FAERS Safety Report 8029425-2 (Version None)
Quarter: 2012Q1

REPORT INFORMATION
  Report Type: 
  Country: None (occurrence: None)
  Receive Date: 20120106
  Receipt Date: 20111207
  Transmission Date: 20120608
  Serious: Yes (Other)
  Sender: FDA-Public Use
  Company Number: US-AMGEN-KDL411573

PATIENT
  Age: 75 Year
  Sex: Female

DRUGS (5)
  1. PREDNISONE TAB [Concomitant]
     Dosage: 10 MG, UNK
  2. CORTICOSTEROIDS [Concomitant]
     Dosage: 160 MG, UNK
  3. IMMUNE GLOBULIN NOS [Concomitant]
  4. NPLATE [Suspect]
     Indication: IDIOPATHIC THROMBOCYTOPENIC PURPURA
     Dosage: 90 MUG/KG, UNK
     Dates: start: 20091202, end: 20100408
  5. NPLATE [Suspect]
     Dosage: UNK
     Dates: start: 20090901

REACTIONS (13)
  - INCORRECT DOSE ADMINISTERED [None]
  - LYMPHADENOPATHY [None]
  - RASH [None]
  - GAIT DISTURBANCE [None]
  - WEIGHT DECREASED [None]
  - PLATELET COUNT INCREASED [None]
  - HYPOTENSION [None]
  - PAIN IN EXTREMITY [None]
  - ASTHENIA [None]
  - HYPOPHAGIA [None]
  - HAEMATOLOGICAL MALIGNANCY [None]
  - NAUSEA [None]
  - DYSGEUSIA [None]
